FAERS Safety Report 8766618 (Version 1)
Quarter: 2012Q4

REPORT INFORMATION
  Report Type: Report from Study
  Country: US (occurrence: US)
  Receive Date: 20120904
  Receipt Date: 20120904
  Transmission Date: 20130627
  Serious: Yes (Other)
  Sender: FDA-Public Use
  Company Number: US-JNJFOC-20120814730

PATIENT
  Age: 58 Year
  Sex: Female

DRUGS (3)
  1. DOXORUBICIN HYDROCHLORIDE (DOXIL) [Suspect]
     Indication: BREAST CANCER METASTATIC
     Dosage: 1-6 months
     Route: 042
  2. CARBOPLATIN [Interacting]
     Indication: BREAST CANCER METASTATIC
     Dosage: 1-6 months
     Route: 065
  3. BEVACIZUMAB [Interacting]
     Indication: BREAST CANCER METASTATIC
     Dosage: 1-6 months
     Route: 065

REACTIONS (2)
  - Pancreatitis [Unknown]
  - Drug interaction [Unknown]
